FAERS Safety Report 5060599-1 (Version None)
Quarter: 2006Q3

REPORT INFORMATION
  Report Type: 
  Country: None (occurrence: None)
  Receive Date: 20060725
  Receipt Date: 20060713
  Transmission Date: 20061208
  Serious: Yes (Other)
  Sender: FDA-Public Use
  Company Number: PHNU2006DE02526

PATIENT
  Sex: Male

DRUGS (2)
  1. ZOMETA [Suspect]
     Indication: METASTASES TO BONE
     Dosage: 4 MG, QMO
     Dates: start: 20050623
  2. FALITHROM ^HEXAL^ [Concomitant]
     Indication: PROPHYLAXIS
     Route: 048

REACTIONS (4)
  - IMPAIRED HEALING [None]
  - TOOTH EXTRACTION [None]
  - TOOTHACHE [None]
  - X-RAY DENTAL [None]
